FAERS Safety Report 4300389-8 (Version None)
Quarter: 2004Q1

REPORT INFORMATION
  Report Type: 
  Country: None (occurrence: None)
  Receive Date: 20040220
  Receipt Date: 20040211
  Transmission Date: 20041129
  Serious: Yes (Other)
  Sender: FDA-Public Use
  Company Number: ZA-GLAXOSMITHKLINE-B0322948A

PATIENT
  Age: 30 Year
  Sex: Female

DRUGS (2)
  1. MALARONE [Suspect]
     Indication: MALARIA PROPHYLAXIS
     Dosage: 1TAB PER DAY
     Dates: start: 20040101, end: 20040101
  2. SALMETEROL + FLUTICASONE [Concomitant]

REACTIONS (3)
  - ANAPHYLACTIC SHOCK [None]
  - HYPOTENSION [None]
  - RESPIRATORY DISTRESS [None]
